FAERS Safety Report 20992659 (Version 1)
Quarter: 2022Q2

REPORT INFORMATION
  Report Type: Spontaneous
  Country: US (occurrence: US)
  Receive Date: 20220622
  Receipt Date: 20220622
  Transmission Date: 20220721
  Serious: Yes (Death, Other)
  Sender: FDA-Public Use
  Company Number: US-PFIZER INC-2020081053

PATIENT
  Age: 83 Year
  Sex: Male
  Weight: 40.82 kg

DRUGS (1)
  1. RAPAMUNE [Suspect]
     Active Substance: SIROLIMUS
     Indication: Prophylaxis against transplant rejection
     Dosage: 0.5 MG, 1X/DAY
     Route: 048

REACTIONS (14)
  - Injury [Fatal]
  - Fall [Fatal]
  - Cervical vertebral fracture [Fatal]
  - Pain [Fatal]
  - Blindness [Unknown]
  - Deafness [Unknown]
  - Pharyngeal swelling [Unknown]
  - Throat tightness [Unknown]
  - Illness [Unknown]
  - Gait disturbance [Unknown]
  - Feeding disorder [Unknown]
  - Fatigue [Unknown]
  - Asthenia [Unknown]
  - Body height decreased [Unknown]

NARRATIVE: CASE EVENT DATE: 20220521
